FAERS Safety Report 13022674 (Version 2)
Quarter: 2016Q4

REPORT INFORMATION
  Report Type: Spontaneous
  Country: CZ (occurrence: CZ)
  Receive Date: 20161213
  Receipt Date: 20161222
  Transmission Date: 20170207
  Serious: Yes (Hospitalization, Disabling, Other)
  Sender: FDA-Public Use
  Company Number: CZ-ABBVIE-16P-217-1808323-00

PATIENT
  Sex: Female

DRUGS (4)
  1. VALPROATE CHRONO [Suspect]
     Active Substance: VALPROATE SODIUM
     Indication: SEIZURE
     Dosage: TABLET, EXTENDED RELEASE
     Route: 048
     Dates: start: 200810, end: 201412
  2. MAGNESIUM LACTATE [Concomitant]
     Active Substance: MAGNESIUM LACTATE
     Indication: PRODUCT USED FOR UNKNOWN INDICATION
     Route: 065
  3. VESICARE [Concomitant]
     Active Substance: SOLIFENACIN SUCCINATE
     Indication: PRODUCT USED FOR UNKNOWN INDICATION
     Route: 065
  4. ATORVASTATIN [Concomitant]
     Active Substance: ATORVASTATIN
     Indication: PRODUCT USED FOR UNKNOWN INDICATION
     Route: 065

REACTIONS (13)
  - Confabulation [Unknown]
  - Mobility decreased [Unknown]
  - Parkinsonism [Unknown]
  - Cognitive disorder [Unknown]
  - Stereotypy [Unknown]
  - Urinary incontinence [Unknown]
  - Urge incontinence [Unknown]
  - Memory impairment [Unknown]
  - Anosognosia [Unknown]
  - Bradyphrenia [Unknown]
  - Dementia [Unknown]
  - Fall [Unknown]
  - Vertigo [Unknown]

NARRATIVE: CASE EVENT DATE: 201312
